FAERS Safety Report 19143338 (Version 3)
Quarter: 2021Q4

REPORT INFORMATION
  Report Type: Other
  Country: JP (occurrence: JP)
  Receive Date: 20210416
  Receipt Date: 20211103
  Transmission Date: 20220304
  Serious: Yes (Hospitalization, Other)
  Sender: FDA-Public Use
  Company Number: JP-CHUGAI-A2021013723ROCHE

PATIENT
  Age: 59 Year

DRUGS (11)
  1. ATEZOLIZUMAB [Suspect]
     Active Substance: ATEZOLIZUMAB
     Indication: Non-small cell lung cancer
     Dosage: DOSE INTERVAL UNCERTAINTY
     Route: 041
     Dates: start: 20210316
  2. BEVACIZUMAB [Suspect]
     Active Substance: BEVACIZUMAB
     Indication: Non-small cell lung cancer
     Dosage: DOSE INTERVAL UNCERTAINTY
     Route: 041
     Dates: start: 20210316
  3. CARBOPLATIN [Suspect]
     Active Substance: CARBOPLATIN
     Indication: Non-small cell lung cancer
     Dosage: DOSE INTERVAL UNCERTAINTY
     Route: 041
     Dates: start: 20210316
  4. CARBOPLATIN [Suspect]
     Active Substance: CARBOPLATIN
     Dosage: DOSE INTERVAL UNCERTAINTY
     Route: 041
     Dates: start: 2021
  5. PACLITAXEL [Suspect]
     Active Substance: PACLITAXEL
     Indication: Non-small cell lung cancer
     Dosage: DOSE INTERVAL UNCERTAINTY
     Route: 041
     Dates: start: 20210316
  6. PACLITAXEL [Suspect]
     Active Substance: PACLITAXEL
     Dosage: DOSE INTERVAL UNCERTAINTY
     Route: 041
     Dates: start: 2021
  7. LOCOID [Concomitant]
     Active Substance: HYDROCORTISONE BUTYRATE
     Indication: Prophylaxis
     Dosage: UNCERTAIN DOSAGE, SEVERAL-TIME SPREADING/DAY
     Route: 003
     Dates: start: 20210321
  8. NEXIUM [Concomitant]
     Active Substance: ESOMEPRAZOLE MAGNESIUM
     Indication: Gastrooesophageal reflux disease
     Dosage: DOSE INTERVAL UNCERTAINTY
     Route: 048
  9. FEXOFENADINE HYDROCHLORIDE [Concomitant]
     Active Substance: FEXOFENADINE HYDROCHLORIDE
     Indication: Prophylaxis
     Dosage: DOSE INTERVAL UNCERTAINTY
     Route: 065
     Dates: start: 20210322
  10. BETAMETHASONE DIPROPIONATE [Concomitant]
     Active Substance: BETAMETHASONE DIPROPIONATE
     Indication: Prophylaxis
     Dosage: UNCERTAIN DOSAGE, SEVERAL-TIME SPREADING/DAY
     Route: 003
     Dates: start: 20210322
  11. LEVOFLOXACIN HEMIHYDRATE [Concomitant]
     Active Substance: LEVOFLOXACIN
     Indication: Prophylaxis
     Dates: start: 20210326, end: 20210329

REACTIONS (8)
  - Febrile neutropenia [Recovered/Resolved]
  - Drug eruption [Recovering/Resolving]
  - Skin exfoliation [Unknown]
  - Peripheral sensory neuropathy [Unknown]
  - Decreased appetite [Unknown]
  - Fatigue [Unknown]
  - Stomatitis [Unknown]
  - Arthralgia [Unknown]

NARRATIVE: CASE EVENT DATE: 20210318
